FAERS Safety Report 10355289 (Version 4)
Quarter: 2015Q3

REPORT INFORMATION
  Report Type: Report from Study
  Country: US (occurrence: US)
  Receive Date: 20140731
  Receipt Date: 20150828
  Transmission Date: 20151125
  Serious: Yes (Hospitalization, Other)
  Sender: FDA-Public Use
  Company Number: US-ALEXION-A201402919

PATIENT

DRUGS (1)
  1. SOLIRIS [Suspect]
     Active Substance: ECULIZUMAB
     Indication: HAEMOLYTIC URAEMIC SYNDROME
     Dosage: 1200 MG, Q2W
     Route: 042
     Dates: start: 20140510

REACTIONS (8)
  - Abdominal pain [Unknown]
  - Pyrexia [Unknown]
  - Catheter site infection [Unknown]
  - Creatinine urine increased [Recovering/Resolving]
  - Unevaluable event [Unknown]
  - Weight decreased [Unknown]
  - Peritonitis [Unknown]
  - Blood creatinine increased [Unknown]

NARRATIVE: CASE EVENT DATE: 201406
